FAERS Safety Report 9125178 (Version 1)
Quarter: 2013Q1

REPORT INFORMATION
  Report Type: Spontaneous
  Country: US (occurrence: US)
  Receive Date: 20130227
  Receipt Date: 20130227
  Transmission Date: 20140127
  Serious: No
  Sender: FDA-Public Use
  Company Number: US-PFIZER INC-2013067560

PATIENT
  Age: 101 Year
  Sex: Male
  Weight: 317 kg

DRUGS (1)
  1. VIAGRA [Suspect]
     Dosage: UNK
     Dates: start: 201302

REACTIONS (2)
  - Penile size reduced [Unknown]
  - Penis disorder [Unknown]
